FAERS Safety Report 8310692-2 (Version None)
Quarter: 2012Q2

REPORT INFORMATION
  Report Type: 
  Country: None (occurrence: None)
  Receive Date: 20120425
  Receipt Date: 20120418
  Transmission Date: 20120825
  Serious: Yes (Other)
  Sender: FDA-Public Use
  Company Number: JP-PFIZER INC-2005064683

PATIENT
  Age: 6 Year
  Sex: Male
  Weight: 34 kg

DRUGS (9)
  1. GENOTROPIN [Suspect]
     Indication: HYPOPITUITARISM
     Dosage: 0.2 MG, 1X/DAY
     Route: 058
     Dates: start: 19970819
  2. GENOTROPIN [Suspect]
     Dosage: 0.5 MG, 1X/DAY
     Dates: start: 19980925, end: 19990119
  3. CORTRIL [Concomitant]
     Route: 048
     Dates: start: 19970523
  4. GENOTROPIN [Suspect]
     Dosage: 0.3 MG, 1X/DAY
     Route: 058
     Dates: start: 19980217, end: 19980721
  5. GENOTROPIN [Suspect]
     Dosage: 0.4 MG, 1X/DAY
     Route: 058
     Dates: start: 19980721, end: 19980925
  6. DESMOPRESSIN ACETATE [Concomitant]
     Route: 055
     Dates: start: 20000321
  7. GENOTROPIN [Suspect]
     Dosage: 0.6 MG, 1X/DAY
     Route: 058
     Dates: start: 19990119, end: 20041008
  8. GENOTROPIN [Suspect]
     Dosage: 0.4 MG, 1X/DAY
     Route: 058
     Dates: start: 20041008
  9. LEVOTHYROXINE SODIUM [Concomitant]
     Route: 048
     Dates: start: 19970515

REACTIONS (1)
  - OSTEOCHONDROSIS [None]
